FAERS Safety Report 8469327-0 (Version None)
Quarter: 2012Q2

REPORT INFORMATION
  Report Type: 
  Country: None (occurrence: None)
  Receive Date: 20120626
  Receipt Date: 20120612
  Transmission Date: 20120825
  Serious: Yes (Hospitalization)
  Sender: FDA-Public Use
  Company Number: US-ROCHE-GNE312393

PATIENT
  Sex: Female
  Weight: 3.696 kg

DRUGS (4)
  1. ALBUTEROL [Concomitant]
     Indication: ASTHMA
     Dosage: UNK
     Route: 064
  2. PENICILLIN G [Concomitant]
     Indication: STREPTOCOCCAL INFECTION
     Route: 064
  3. OMALIZUMAB [Suspect]
     Indication: ASTHMA
     Dosage: 300 MG, Q4W
     Route: 064
     Dates: start: 20060801
  4. OMALIZUMAB [Suspect]

REACTIONS (3)
  - EAR INFECTION [None]
  - MATERNAL EXPOSURE TIMING UNSPECIFIED [None]
  - FOETAL DISTRESS SYNDROME [None]
